FAERS Safety Report 18374902 (Version 1)
Quarter: 2020Q4

REPORT INFORMATION
  Report Type: Report from Study
  Country: US (occurrence: US)
  Receive Date: 20201012
  Receipt Date: 20201012
  Transmission Date: 20210114
  Serious: Yes (Life-Threatening, Hospitalization, Other)
  Sender: FDA-Public Use
  Company Number: US-EXELIXIS-XL18420033730

PATIENT

DRUGS (4)
  1. PLACEBO [Suspect]
     Active Substance: UNSPECIFIED INGREDIENT
     Indication: CARCINOID TUMOUR
     Dosage: 60 MG, QD
     Route: 048
     Dates: start: 20200623
  2. BLINDED XL184 [Suspect]
     Active Substance: CABOZANTINIB
     Dosage: 40 MG, QD
     Route: 048
     Dates: start: 20200804, end: 20200901
  3. PLACEBO [Suspect]
     Active Substance: UNSPECIFIED INGREDIENT
     Dosage: 40 MG, QD
     Route: 048
     Dates: start: 20200804, end: 20200901
  4. BLINDED XL184 [Suspect]
     Active Substance: CABOZANTINIB
     Indication: CARCINOID TUMOUR
     Dosage: 60 MG, QD
     Route: 048
     Dates: start: 20200623

REACTIONS (2)
  - Sepsis [Not Recovered/Not Resolved]
  - Blood creatinine increased [Not Recovered/Not Resolved]

NARRATIVE: CASE EVENT DATE: 20200913
